FAERS Safety Report 8501859-9 (Version None)
Quarter: 2012Q3

REPORT INFORMATION
  Report Type: 
  Country: None (occurrence: None)
  Receive Date: 20120711
  Receipt Date: 20120704
  Transmission Date: 20120928
  Serious: Yes (Other)
  Sender: FDA-Public Use
  Company Number: PHHY2012TR057740

PATIENT

DRUGS (1)
  1. RITALIN [Suspect]

REACTIONS (1)
  - HEPATITIS TOXIC [None]
